FAERS Safety Report 8060054-0 (Version None)
Quarter: 2012Q1

REPORT INFORMATION
  Report Type: 
  Country: None (occurrence: None)
  Receive Date: 20120120
  Receipt Date: 20120110
  Transmission Date: 20120608
  Serious: Yes (Life-Threatening, Hospitalization)
  Sender: FDA-Public Use
  Company Number: US-JNJFOC-20100803387

PATIENT
  Age: 58 Year
  Sex: Female
  Weight: 58 kg

DRUGS (5)
  1. HYDROCODONE BITARTRATE [Suspect]
     Indication: ABDOMINAL PAIN
     Route: 065
  2. HYDROCODONE BITARTRATE + ACETAMINOPHEN [Suspect]
     Indication: ABDOMINAL PAIN
     Route: 065
  3. OXYCODONE/ACETAMINOPHEN [Suspect]
     Indication: ABDOMINAL PAIN
     Route: 065
  4. SUDAFED PE TRIPLE ACTION CAPLET [Suspect]
     Indication: ABDOMINAL PAIN
     Route: 065
  5. DIAZEPAM [Suspect]
     Indication: ABDOMINAL PAIN
     Route: 065

REACTIONS (4)
  - TOXICITY TO VARIOUS AGENTS [None]
  - HEPATIC NECROSIS [None]
  - PANCREATITIS [None]
  - SUBSTANCE ABUSE [None]
